FAERS Safety Report 20248892 (Version 1)
Quarter: 2021Q4

REPORT INFORMATION
  Report Type: Spontaneous
  Country: DE (occurrence: DE)
  Receive Date: 20211229
  Receipt Date: 20211229
  Transmission Date: 20220304
  Serious: Yes (Other)
  Sender: FDA-Public Use
  Company Number: DE-EMBRYOTOX-202110237

PATIENT
  Age: 3 Year
  Sex: Male

DRUGS (4)
  1. LAMOTRIGINE [Suspect]
     Active Substance: LAMOTRIGINE
     Indication: Epilepsy
     Dosage: 250 [MG/D ]/ 100-0-150 MG DAILY , ADDITIONAL INFO : 0. - 40.2. GESTATIONAL WEEK
     Route: 064
     Dates: start: 20170525, end: 20180303
  2. FLUPENTIXOL [Suspect]
     Active Substance: FLUPENTIXOL
     Indication: Schizophrenia
     Dosage: 6 MILLIGRAM DAILY; ADDITIONAL INFO : 0. - 40.2. GESTATIONAL WEEK
     Route: 064
     Dates: start: 20170525, end: 20180303
  3. ENOXAPARIN SODIUM [Concomitant]
     Active Substance: ENOXAPARIN SODIUM
     Indication: Factor V Leiden mutation
     Dosage: ADDITIONAL INFO : 5. - 40.2. GESTATIONAL WEEK
     Route: 064
  4. FOLIC ACID [Concomitant]
     Active Substance: FOLIC ACID
     Indication: Prophylaxis of neural tube defect
     Dosage: ADDITIONAL INFO : 0. - 40.2. GESTATIONAL WEEK
     Route: 064
     Dates: start: 20170525, end: 20180303

REACTIONS (4)
  - Cognitive disorder [Not Recovered/Not Resolved]
  - Speech disorder developmental [Not Recovered/Not Resolved]
  - Motor developmental delay [Not Recovered/Not Resolved]
  - Foetal exposure during pregnancy [Unknown]

NARRATIVE: CASE EVENT DATE: 20170525
